FAERS Safety Report 25709464 (Version 1)
Quarter: 2025Q3

REPORT INFORMATION
  Report Type: Spontaneous
  Country: EU (occurrence: EU)
  Receive Date: 20250821
  Receipt Date: 20250821
  Transmission Date: 20251021
  Serious: Yes (Death, Hospitalization)
  Sender: SANDOZ
  Company Number: EU-TEVA-VS-3360657

PATIENT
  Age: 80 Year
  Sex: Female

DRUGS (4)
  1. AZATHIOPRINE [Suspect]
     Active Substance: AZATHIOPRINE
     Indication: Autoimmune hepatitis
     Dosage: 50 MG, QD
     Route: 065
     Dates: start: 2021
  2. BUDESONIDE [Suspect]
     Active Substance: BUDESONIDE
     Indication: Autoimmune hepatitis
     Dosage: 9 MG, QD
     Route: 065
     Dates: start: 2021
  3. PREDNISOLONE [Suspect]
     Active Substance: PREDNISOLONE
     Indication: Autoimmune hepatitis
     Dosage: 40 MG, QD
     Route: 065
     Dates: start: 2021
  4. PIPERACILLIN SODIUM\TAZOBACTAM SODIUM [Concomitant]
     Active Substance: PIPERACILLIN SODIUM\TAZOBACTAM SODIUM
     Indication: Antibiotic therapy
     Route: 065
     Dates: start: 2021

REACTIONS (13)
  - Disseminated nocardiosis [Fatal]
  - Nocardia sepsis [Fatal]
  - Shock [Fatal]
  - Circulatory collapse [Fatal]
  - Lung abscess [Unknown]
  - Peritonitis bacterial [Unknown]
  - Pneumonia [Unknown]
  - Bronchopulmonary aspergillosis [Unknown]
  - Renal abscess [Unknown]
  - Herpes simplex pneumonia [Unknown]
  - Aspergillus infection [Unknown]
  - Abdominal abscess [Unknown]
  - Abscess soft tissue [Unknown]

NARRATIVE: CASE EVENT DATE: 20210101
